FAERS Safety Report 6097878-5 (Version None)
Quarter: 2009Q1

REPORT INFORMATION
  Report Type: 
  Country: None (occurrence: None)
  Receive Date: 20090227
  Receipt Date: 20090216
  Transmission Date: 20090719
  Serious: Yes (Other)
  Sender: FDA-Public Use
  Company Number: PHHY2008DE28164

PATIENT
  Sex: Male

DRUGS (3)
  1. PROVAS [Suspect]
     Indication: HYPERTENSION
     Dosage: 160 MG, QD
     Dates: start: 20061023, end: 20081007
  2. ASS ^CT-ARZNEIMITTEL^ [Concomitant]
     Dosage: 100 MG
     Dates: start: 20061001
  3. PANTOZOL [Concomitant]
     Indication: DYSPEPSIA
     Dosage: 20 MG, BID
     Dates: start: 20070716

REACTIONS (6)
  - DIZZINESS [None]
  - DYSPEPSIA [None]
  - HYPOAESTHESIA FACIAL [None]
  - MUSCLE SPASMS [None]
  - MYALGIA [None]
  - TORTICOLLIS [None]
